FAERS Safety Report 24987521 (Version 1)
Quarter: 2025Q1

REPORT INFORMATION
  Report Type: Spontaneous
  Country: FR (occurrence: FR)
  Receive Date: 20250219
  Receipt Date: 20250219
  Transmission Date: 20250409
  Serious: Yes (Life-Threatening, Hospitalization)
  Sender: PFIZER
  Company Number: None

PATIENT
  Age: 34 Year
  Sex: Female
  Weight: 55 kg

DRUGS (5)
  1. CARBOPLATIN [Suspect]
     Active Substance: CARBOPLATIN
     Indication: Ovarian cancer
     Route: 042
     Dates: start: 20241025, end: 20241025
  2. ONDANSETRON [Suspect]
     Active Substance: ONDANSETRON
     Indication: Ovarian cancer
     Route: 042
     Dates: start: 20241025, end: 20241025
  3. CHLORHEXIDINE BIGLUCONATE [Concomitant]
     Indication: Ovarian cancer
     Route: 003
     Dates: start: 20241025, end: 20241025
  4. GEMCITABINE [Concomitant]
     Active Substance: GEMCITABINE
     Indication: Ovarian cancer
     Route: 042
     Dates: start: 20241025, end: 20241025
  5. METHYLPREDNISOLONE [Concomitant]
     Active Substance: METHYLPREDNISOLONE
     Indication: Ovarian cancer
     Route: 042
     Dates: start: 20241025, end: 20241025

REACTIONS (1)
  - Anaphylactic shock [Recovered/Resolved]

NARRATIVE: CASE EVENT DATE: 20241025
